FAERS Safety Report 5956783-2 (Version None)
Quarter: 2008Q4

REPORT INFORMATION
  Report Type: 
  Country: None (occurrence: None)
  Receive Date: 20081105
  Receipt Date: 20080111
  Transmission Date: 20090506
  Serious: No
  Sender: FDA-Public Use
  Company Number: 2008-170512-NL

PATIENT
  Age: 20 Year
  Sex: Female

DRUGS (4)
  1. ZEMURON [Suspect]
     Indication: MUSCLE RELAXANT THERAPY
     Dosage: DF INTRAVENOUS (NOS), 20-30 MG
     Route: 042
     Dates: start: 20070101, end: 20070101
  2. SUCCINYLOCHOLINE [Suspect]
     Indication: ENDOTRACHEAL INTUBATION
     Dosage: DF INTRAVENOUS (NOS)
     Route: 042
     Dates: start: 20070101, end: 20070101
  3. NEOSTIGMINE [Concomitant]
  4. ROBINUL [Concomitant]

REACTIONS (1)
  - NEUROMUSCULAR BLOCK PROLONGED [None]
